FAERS Safety Report 9398385 (Version 2)
Quarter: 2013Q3

REPORT INFORMATION
  Report Type: Report from Study
  Country: JP (occurrence: JP)
  Receive Date: 20130712
  Receipt Date: 20130729
  Transmission Date: 20140515
  Serious: Yes (Hospitalization)
  Sender: FDA-Public Use
  Company Number: JP-CELGENEUS-087-21660-13070968

PATIENT
  Age: 61 Year
  Sex: Male
  Weight: 81 kg

DRUGS (16)
  1. ABRAXANE [Suspect]
     Indication: GASTRIC CANCER
     Dosage: 201 MILLIGRAM
     Route: 041
     Dates: start: 20130625
  2. ABRAXANE [Suspect]
     Dosage: 80 MILLIGRAM/SQ. METER
     Route: 041
     Dates: start: 20130716
  3. BAYASPIRIN [Suspect]
     Indication: THROMBOSIS PROPHYLAXIS
     Route: 048
     Dates: start: 2008
  4. PLAVIX [Suspect]
     Indication: THROMBOSIS PROPHYLAXIS
     Route: 048
     Dates: start: 2008, end: 20130704
  5. LOXOPROFEN [Suspect]
     Indication: MYALGIA
     Route: 048
     Dates: start: 20130629, end: 20130630
  6. LOXOPROFEN [Suspect]
     Indication: ARTHRALGIA
  7. DEXAMETHASONE ACETATE [Concomitant]
     Indication: PROPHYLAXIS OF NAUSEA AND VOMITING
     Dosage: 8 MILLIGRAM
     Route: 041
     Dates: start: 20130625
  8. SELARA [Concomitant]
     Indication: HYPERTENSION
     Dosage: 25 MILLIGRAM
     Route: 048
     Dates: start: 2007
  9. ARTIST [Concomitant]
     Indication: HYPERTENSION
     Dosage: 5 MILLIGRAM
     Route: 048
     Dates: start: 1998
  10. ALOSITOL [Concomitant]
     Indication: PROPHYLAXIS
     Dosage: 100 MILLIGRAM
     Route: 048
     Dates: start: 1998
  11. MEVALOTIN [Concomitant]
     Indication: PROPHYLAXIS
     Dosage: 5 MILLIGRAM
     Route: 048
     Dates: start: 1998
  12. ACTOS [Concomitant]
     Indication: DIABETES MELLITUS
     Dosage: 15 MILLIGRAM
     Route: 048
     Dates: start: 2008
  13. TAKEPRON [Concomitant]
     Indication: PROPHYLAXIS AGAINST GASTROINTESTINAL ULCER
     Dosage: 30 MILLIGRAM
     Route: 048
     Dates: start: 2008
  14. FERROMIA [Concomitant]
     Indication: ANAEMIA
     Dosage: 100 MILLIGRAM
     Route: 048
     Dates: start: 201301
  15. MUCOSTA [Concomitant]
     Indication: GASTRITIS PROPHYLAXIS
     Route: 048
     Dates: start: 20130629, end: 20130630
  16. BLOOD TRANSFUSION [Concomitant]
     Indication: PRODUCT USED FOR UNKNOWN INDICATION
     Dosage: 4 UNITS
     Route: 065
     Dates: start: 20130704

REACTIONS (1)
  - Upper gastrointestinal haemorrhage [Recovered/Resolved]
